FAERS Safety Report 5464440-4 (Version None)
Quarter: 2007Q3

REPORT INFORMATION
  Report Type: 
  Country: None (occurrence: None)
  Receive Date: 20070921
  Receipt Date: 20070911
  Transmission Date: 20080115
  Serious: Yes (Hospitalization)
  Sender: FDA-Public Use
  Company Number: US-SANOFI-SYNTHELABO-A03200702809

PATIENT
  Sex: Male

DRUGS (5)
  1. LIPITOR [Concomitant]
     Dosage: UNK
     Route: 048
  2. NIASPAN [Suspect]
     Indication: STENT PLACEMENT
     Dosage: UNK
     Route: 048
     Dates: start: 20070101, end: 20070220
  3. PLAVIX [Interacting]
     Indication: STENT PLACEMENT
     Route: 048
     Dates: start: 20070101, end: 20070401
  4. NAPROSYN [Interacting]
     Indication: BACK PAIN
     Dosage: UNK
     Route: 048
     Dates: end: 20070401
  5. ASPIRIN [Concomitant]
     Dosage: UNK
     Route: 065

REACTIONS (4)
  - DRUG INTERACTION [None]
  - RASH ERYTHEMATOUS [None]
  - SKIN BACTERIAL INFECTION [None]
  - SKIN ULCER [None]
